FAERS Safety Report 6611207-7 (Version None)
Quarter: 2010Q1

REPORT INFORMATION
  Report Type: 
  Country: None (occurrence: None)
  Receive Date: 20100226
  Receipt Date: 20100226
  Transmission Date: 20100710
  Serious: Yes (Other)
  Sender: FDA-Public Use
  Company Number: None

PATIENT
  Sex: Female
  Weight: 80.7403 kg

DRUGS (1)
  1. VERAPAMIL [Suspect]
     Indication: PALPITATIONS
     Dosage: 120MG ONE QD ORAL
     Route: 048
     Dates: start: 20020101

REACTIONS (1)
  - TACHYARRHYTHMIA [None]
